FAERS Safety Report 13572804 (Version 1)
Quarter: 2017Q2

REPORT INFORMATION
  Report Type: Spontaneous
  Country: US (occurrence: US)
  Receive Date: 20170523
  Receipt Date: 20170523
  Transmission Date: 20170830
  Serious: No
  Sender: FDA-Public Use
  Company Number: US-JNJFOC-20170415790

PATIENT
  Sex: Male
  Weight: 65.77 kg

DRUGS (5)
  1. BENZTROPINE [Concomitant]
     Active Substance: BENZTROPINE
     Route: 065
  2. INVEGA SUSTENNA [Suspect]
     Active Substance: PALIPERIDONE PALMITATE
     Indication: PRODUCT USED FOR UNKNOWN INDICATION
     Route: 030
  3. HYDROXYZINE [Concomitant]
     Active Substance: HYDROXYZINE HYDROCHLORIDE
     Route: 065
  4. TRAZODONE [Concomitant]
     Active Substance: TRAZODONE HYDROCHLORIDE
     Route: 065
  5. FLUPHENAZINE [Concomitant]
     Active Substance: FLUPHENAZINE
     Route: 048

REACTIONS (1)
  - Injection site rash [Not Recovered/Not Resolved]
